FAERS Safety Report 12824480 (Version 5)
Quarter: 2016Q4

REPORT INFORMATION
  Report Type: Spontaneous
  Country: IT (occurrence: IT)
  Receive Date: 20161007
  Receipt Date: 20161021
  Transmission Date: 20170207
  Serious: Yes (Other)
  Sender: FDA-Public Use
  Company Number: IT-SA-2016SA182907

PATIENT
  Age: 58 Year
  Sex: Female
  Weight: 60 kg

DRUGS (9)
  1. OXALIPLATIN. [Suspect]
     Active Substance: OXALIPLATIN
     Indication: ADENOCARCINOMA PANCREAS
     Route: 042
     Dates: start: 20160905, end: 20160905
  2. OXALIPLATIN. [Suspect]
     Active Substance: OXALIPLATIN
     Indication: ADENOCARCINOMA PANCREAS
     Route: 042
     Dates: start: 20160926, end: 20160926
  3. CLEXANE [Concomitant]
     Active Substance: ENOXAPARIN SODIUM
     Route: 065
  4. TELMISARTAN. [Concomitant]
     Active Substance: TELMISARTAN
     Route: 065
  5. CAPECITABINE. [Suspect]
     Active Substance: CAPECITABINE
     Indication: ADENOCARCINOMA PANCREAS
     Route: 065
     Dates: start: 20160905
  6. CREON [Concomitant]
     Active Substance: PANCRELIPASE AMYLASE\PANCRELIPASE LIPASE\PANCRELIPASE PROTEASE
     Route: 065
  7. ATENOLOL. [Concomitant]
     Active Substance: ATENOLOL
     Route: 065
  8. OMEPRAZOLE. [Concomitant]
     Active Substance: OMEPRAZOLE
     Route: 065
  9. INSULIN [Concomitant]
     Active Substance: INSULIN NOS
     Route: 065

REACTIONS (2)
  - Hyperglycaemia [Recovering/Resolving]
  - Hypertensive crisis [Recovering/Resolving]

NARRATIVE: CASE EVENT DATE: 20160906
